FAERS Safety Report 7116016-0 (Version None)
Quarter: 2010Q4

REPORT INFORMATION
  Report Type: 
  Country: None (occurrence: None)
  Receive Date: 20101122
  Receipt Date: 20101116
  Transmission Date: 20110411
  Serious: Yes (Death, Hospitalization)
  Sender: FDA-Public Use
  Company Number: ZA-ROCHE-726493

PATIENT
  Sex: Male

DRUGS (11)
  1. PEGASYS [Suspect]
     Indication: HEPATITIS C
     Route: 065
     Dates: start: 20100315, end: 20101026
  2. COPEGUS [Suspect]
     Indication: HEPATITIS C
     Route: 065
     Dates: start: 20100315
  3. COPEGUS [Suspect]
     Dosage: DOSE REDUCED ON 25 OCTOBER 2010
     Route: 065
     Dates: start: 20101025, end: 20101026
  4. RECORMON [Suspect]
     Indication: ANAEMIA
     Route: 058
     Dates: start: 20100623
  5. RECORMON [Suspect]
     Route: 058
     Dates: start: 20100728
  6. RECORMON [Suspect]
     Route: 058
  7. NEUPOGEN [Concomitant]
     Indication: NEUTROPENIA
     Route: 065
  8. IMURAN [Concomitant]
     Dates: end: 20100501
  9. PREDNISONE [Concomitant]
     Dates: end: 20100501
  10. ADALAT [Concomitant]
     Dates: end: 20100501
  11. DAPSON [Concomitant]
     Dosage: FREQUENCY: DAILY
     Dates: end: 20100501

REACTIONS (7)
  - ACCIDENTAL OVERDOSE [None]
  - ANAEMIA [None]
  - COUGH [None]
  - INTERSTITIAL LUNG DISEASE [None]
  - IRRITABILITY [None]
  - NEUTROPENIA [None]
  - SEPSIS [None]
